FAERS Safety Report 22390361 (Version 1)
Quarter: 2023Q2

REPORT INFORMATION
  Report Type: Spontaneous
  Country: US (occurrence: US)
  Receive Date: 20230531
  Receipt Date: 20230531
  Transmission Date: 20230722
  Serious: No
  Sender: FDA-Public Use
  Company Number: US-PFIZER INC-PV202300095805

PATIENT
  Age: 38 Year
  Sex: Female

DRUGS (2)
  1. SONATA [Suspect]
     Active Substance: ZALEPLON
     Indication: Sleep disorder
     Dosage: UNK
  2. BENADRYL [Concomitant]
     Active Substance: DIPHENHYDRAMINE HYDROCHLORIDE
     Dosage: UNK

REACTIONS (1)
  - Excessive eye blinking [Unknown]
